FAERS Safety Report 5274418-1 (Version None)
Quarter: 2007Q1

REPORT INFORMATION
  Report Type: 
  Country: None (occurrence: None)
  Receive Date: 20070323
  Receipt Date: 20070313
  Transmission Date: 20070707
  Serious: Yes (Disabling, Other)
  Sender: FDA-Public Use
  Company Number: JP-PFIZER INC-2007014339

PATIENT
  Sex: Female
  Weight: 40 kg

DRUGS (5)
  1. GABAPEN [Suspect]
     Indication: EPILEPSY
     Dosage: DAILY DOSE:2400MG
     Route: 048
  2. TEGRETOL [Concomitant]
     Route: 048
  3. NITRAZEPAM [Concomitant]
     Route: 048
     Dates: start: 20060718
  4. DEPROMEL [Concomitant]
     Route: 048
     Dates: start: 20011225
  5. ALEVIATIN [Concomitant]
     Route: 048
     Dates: start: 20061227, end: 20070201

REACTIONS (1)
  - PSYCHOTIC DISORDER [None]
